FAERS Safety Report 5710443-1 (Version None)
Quarter: 2008Q2

REPORT INFORMATION
  Report Type: 
  Country: None (occurrence: None)
  Receive Date: 20080418
  Receipt Date: 20080408
  Transmission Date: 20081010
  Serious: Yes (Other)
  Sender: FDA-Public Use
  Company Number: FR-PFIZER INC-2008033273

PATIENT
  Sex: Female

DRUGS (5)
  1. HYDROXYZINE HYDROCHLORIDE [Suspect]
     Indication: URTICARIA
     Dosage: DAILY DOSE:25MG-FREQ:QD
     Route: 048
     Dates: start: 20080102, end: 20080111
  2. DESLORATADINE [Concomitant]
     Indication: URTICARIA
     Dosage: TEXT:1 DF
     Route: 048
     Dates: start: 20080102, end: 20080111
  3. CELESTAMINE TAB [Concomitant]
     Indication: URTICARIA
     Dosage: TEXT:2 DF
     Route: 048
     Dates: start: 20080102, end: 20080111
  4. CITALOPRAM HYDROBROMIDE [Concomitant]
     Dates: start: 20080101, end: 20080111
  5. ZOPICLONE [Concomitant]
     Dates: start: 20080101, end: 20080111

REACTIONS (1)
  - STEVENS-JOHNSON SYNDROME [None]
